FAERS Safety Report 15002558 (Version 1)
Quarter: 2018Q2

REPORT INFORMATION
  Report Type: Spontaneous
  Country: TW (occurrence: TW)
  Receive Date: 20180612
  Receipt Date: 20180612
  Transmission Date: 20180711
  Serious: Yes (Other)
  Sender: FDA-Public Use
  Company Number: TW-GUERBET-TW-20180003

PATIENT
  Age: 83 Year
  Sex: Male

DRUGS (1)
  1. LIPIODOL ULTRA-FLUIDE [Suspect]
     Active Substance: ETHIODIZED OIL
     Indication: TRANSCATHETER ARTERIAL CHEMOEMBOLISATION
     Route: 013

REACTIONS (3)
  - Disease progression [Unknown]
  - Liver abscess [Unknown]
  - Intestinal metastasis [Unknown]
